FAERS Safety Report 7339774-9 (Version None)
Quarter: 2011Q1

REPORT INFORMATION
  Report Type: 
  Country: None (occurrence: None)
  Receive Date: 20110304
  Receipt Date: 20110304
  Transmission Date: 20110831
  Serious: Yes (Life-Threatening)
  Sender: FDA-Public Use
  Company Number: None

PATIENT
  Age: 17 Year
  Sex: Male
  Weight: 59.4212 kg

DRUGS (2)
  1. FLUOXETINE [Suspect]
  2. PROZAC [Concomitant]

REACTIONS (5)
  - SUICIDE ATTEMPT [None]
  - HUMAN BITE [None]
  - ASPHYXIA [None]
  - INSOMNIA [None]
  - SELF INJURIOUS BEHAVIOUR [None]
